FAERS Safety Report 7354774-0 (Version None)
Quarter: 2011Q1

REPORT INFORMATION
  Report Type: 
  Country: None (occurrence: None)
  Receive Date: 20110311
  Receipt Date: 20110311
  Transmission Date: 20110831
  Serious: No
  Sender: FDA-Public Use
  Company Number: None

PATIENT
  Sex: Female
  Weight: 88.4514 kg

DRUGS (1)
  1. COENZYME Q10 [Suspect]
     Dosage: 200 MG QD ORAL
     Route: 048
     Dates: start: 20101201, end: 20110101

REACTIONS (5)
  - NAUSEA [None]
  - HEADACHE [None]
  - PRODUCT QUALITY ISSUE [None]
  - MEDICATION ERROR [None]
  - DIZZINESS [None]
